FAERS Safety Report 9818162 (Version 2)
Quarter: 2014Q1

REPORT INFORMATION
  Report Type: Spontaneous
  Country: US (occurrence: US)
  Receive Date: 20140115
  Receipt Date: 20140129
  Transmission Date: 20141002
  Serious: Yes (Hospitalization)
  Sender: FDA-Public Use
  Company Number: US-NOVOPROD-397501

PATIENT
  Age: 62 Year
  Sex: Male
  Weight: 115.65 kg

DRUGS (2)
  1. VICTOZA [Suspect]
     Indication: DIABETES MELLITUS
     Dosage: 1.8 MG, QD
     Route: 058
     Dates: start: 201203, end: 201401
  2. VICTOZA [Suspect]
     Indication: OBESITY

REACTIONS (2)
  - Pancreatic carcinoma metastatic [Unknown]
  - Off label use [Unknown]
